FAERS Safety Report 8015634-5 (Version None)
Quarter: 2011Q4

REPORT INFORMATION
  Report Type: 
  Country: None (occurrence: None)
  Receive Date: 20111230
  Receipt Date: 20111220
  Transmission Date: 20120403
  Serious: Yes (Hospitalization)
  Sender: FDA-Public Use
  Company Number: JP-MPIJNJ-2011-06554

PATIENT

DRUGS (17)
  1. VALTREX [Concomitant]
     Indication: INFECTION PROPHYLAXIS
     Dosage: 500 MG, UNK
     Route: 048
     Dates: start: 20110809
  2. PANOBINOSTAT [Suspect]
     Indication: MULTIPLE MYELOMA
     Dosage: 20 MG, UNK
     Route: 048
     Dates: start: 20110809
  3. PANOBINOSTAT [Suspect]
     Dosage: 15 MG, UNK
     Route: 048
     Dates: start: 20110905
  4. LOPERAMIDE HCL [Concomitant]
     Indication: DIARRHOEA
     Dosage: 1 MG, UNK
     Route: 048
     Dates: start: 20111102
  5. POLARAMINE                         /00043702/ [Concomitant]
     Indication: URTICARIA
     Dosage: 4 MG, UNK
     Route: 048
     Dates: start: 20111212, end: 20111213
  6. PANOBINOSTAT [Suspect]
     Dosage: 10 MG, UNK
     Route: 048
     Dates: start: 20110926
  7. PLATELETS, CONCENTRATED [Concomitant]
     Dosage: UNK
     Route: 041
     Dates: start: 20110822, end: 20110822
  8. RED BLOOD CELLS, CONCENTRATED [Concomitant]
     Dosage: UNK
     Route: 041
     Dates: start: 20110903
  9. CEFAZOLIN SODIUM [Concomitant]
     Indication: DIARRHOEA
     Dosage: 3 G, UNK
     Route: 048
     Dates: start: 20111102
  10. SELBEX [Concomitant]
     Indication: GASTRITIS PROPHYLAXIS
     Dosage: 150 MG, UNK
     Route: 048
     Dates: start: 20111110
  11. VELCADE [Suspect]
     Indication: MULTIPLE MYELOMA
     Dosage: 1.3 MG/M2, UNK
     Route: 042
     Dates: start: 20110809, end: 20110925
  12. VELCADE [Suspect]
     Dosage: 1.0 MG/M2, UNK
     Route: 042
     Dates: start: 20110926
  13. DEXAMETHASONE [Suspect]
     Indication: MULTIPLE MYELOMA
     Dosage: 20 MG, UNK
     Route: 048
     Dates: start: 20110809, end: 20111111
  14. OLOPATADINE HCL [Concomitant]
     Indication: URTICARIA
     Dosage: 10 MG, UNK
     Route: 048
     Dates: start: 20111212
  15. DEXAMETHASONE [Suspect]
     Dosage: 10 MG, UNK
     Route: 048
     Dates: start: 20111114
  16. ALBUMIN TANNATE [Concomitant]
     Indication: DIARRHOEA
     Dosage: 3 G, UNK
     Route: 048
     Dates: start: 20111110
  17. FAMOTIDINE [Concomitant]
     Indication: GASTRITIS PROPHYLAXIS
     Dosage: 20 MG, UNK
     Route: 048
     Dates: start: 20111114

REACTIONS (3)
  - DIARRHOEA [None]
  - NEUTROPHIL COUNT DECREASED [None]
  - ADENOVIRAL HAEMORRHAGIC CYSTITIS [None]
